FAERS Safety Report 11072918 (Version 1)
Quarter: 2015Q2

REPORT INFORMATION
  Report Type: Report from Study
  Country: AU (occurrence: AU)
  Receive Date: 20150428
  Receipt Date: 20150428
  Transmission Date: 20150821
  Serious: Yes (Other)
  Sender: FDA-Public Use
  Company Number: AU-SA-2015SA051240

PATIENT
  Age: 64 Year
  Sex: Female

DRUGS (8)
  1. BETMIGA [Concomitant]
     Active Substance: MIRABEGRON
  2. AVANZA [Concomitant]
     Active Substance: MIRTAZAPINE
  3. CRESTOR [Concomitant]
     Active Substance: ROSUVASTATIN CALCIUM
  4. LYRICA [Concomitant]
     Active Substance: PREGABALIN
  5. NEXIUM [Concomitant]
     Active Substance: ESOMEPRAZOLE MAGNESIUM
  6. AUBAGIO [Suspect]
     Active Substance: TERIFLUNOMIDE
     Route: 048
     Dates: start: 20150105
  7. THYROXIN [Concomitant]
     Active Substance: LEVOTHYROXINE
  8. VITAMIN D [Concomitant]
     Active Substance: CHOLECALCIFEROL

REACTIONS (5)
  - White blood cell count increased [Unknown]
  - Paraesthesia [Recovered/Resolved]
  - Alopecia [Unknown]
  - Urinary tract infection [Unknown]
  - Liver function test abnormal [Recovered/Resolved]

NARRATIVE: CASE EVENT DATE: 201501
